FAERS Safety Report 4675893-3 (Version None)
Quarter: 2005Q2

REPORT INFORMATION
  Report Type: 
  Country: None (occurrence: None)
  Receive Date: 20050526
  Receipt Date: 20050526
  Transmission Date: 20051028
  Serious: Yes (Other)
  Sender: FDA-Public Use
  Company Number: None

PATIENT
  Age: 48 Year
  Sex: Male
  Weight: 66.2252 kg

DRUGS (2)
  1. HYDROCODONE BITARTRATE + ACETAMINOPHEN [Suspect]
     Indication: BACK PAIN
     Dosage: 1 EVERY FOUR HOURS
     Dates: start: 20050520
  2. HYDROCODONE 10MG/500MG (QUALITEST PHARMACEUTICALS) [Suspect]
     Indication: BACK PAIN
     Dosage: 1 EVERY FOUR HOURS
     Dates: start: 20050520

REACTIONS (4)
  - ABDOMINAL DISTENSION [None]
  - PHARMACEUTICAL PRODUCT COMPLAINT [None]
  - SELF-MEDICATION [None]
  - SOMNOLENCE [None]
